FAERS Safety Report 10983420 (Version 1)
Quarter: 2015Q2

REPORT INFORMATION
  Report Type: Spontaneous
  Country: HU (occurrence: HU)
  Receive Date: 20150403
  Receipt Date: 20150403
  Transmission Date: 20150821
  Serious: Yes (Life-Threatening, Hospitalization)
  Sender: FDA-Public Use
  Company Number: HU-PFIZER INC-2015112406

PATIENT
  Age: 55 Year
  Sex: Female

DRUGS (2)
  1. ALPRAZOLAM. [Suspect]
     Active Substance: ALPRAZOLAM
     Dosage: 0.5 MG, DAILY
  2. ALPRAZOLAM. [Suspect]
     Active Substance: ALPRAZOLAM
     Indication: PANIC DISORDER
     Dosage: 0.5 MG, 2X/DAY

REACTIONS (2)
  - Phaeochromocytoma [Recovered/Resolved]
  - Malignant hypertension [Recovered/Resolved]
